FAERS Safety Report 6265977-0 (Version None)
Quarter: 2009Q3

REPORT INFORMATION
  Report Type: 
  Country: None (occurrence: None)
  Receive Date: 20090709
  Receipt Date: 20090709
  Transmission Date: 20100115
  Serious: Yes (Disabling)
  Sender: FDA-Public Use
  Company Number: None

PATIENT
  Age: 63 Year
  Sex: Female
  Weight: 82.5547 kg

DRUGS (1)
  1. ALDARA [Suspect]
     Indication: HYPERKERATOSIS
     Dosage: 1 PACKET 3 TIMES/WEEK TOP
     Route: 061
     Dates: start: 20090401, end: 20090415

REACTIONS (4)
  - ANGIOEDEMA [None]
  - FEAR [None]
  - GENERALISED OEDEMA [None]
  - INCREASED UPPER AIRWAY SECRETION [None]
